FAERS Safety Report 7956301-3 (Version None)
Quarter: 2011Q4

REPORT INFORMATION
  Report Type: 
  Country: None (occurrence: None)
  Receive Date: 20111125
  Receipt Date: 20111115
  Transmission Date: 20120403
  Serious: Yes (Other)
  Sender: FDA-Public Use
  Company Number: 2011030326

PATIENT
  Sex: Female
  Weight: 66.2252 kg

DRUGS (3)
  1. PRIVIGEN [Suspect]
     Dosage: (25 G, 30 ML/HR-100ML/HR; 3 HOUR INFUSION (10% IVIG CONCENTRATION) INTRAVENOUS (NOT OTHERWISE SPEICI
     Route: 042
     Dates: start: 20101011
  2. MELOXICAM [Concomitant]
  3. GABAPENTIN [Concomitant]

REACTIONS (2)
  - WHITE BLOOD CELL COUNT DECREASED [None]
  - NEUTROPENIA [None]
